FAERS Safety Report 9328890 (Version 2)
Quarter: 2013Q3

REPORT INFORMATION
  Report Type: Spontaneous
  Country: IT (occurrence: IT)
  Receive Date: 20130604
  Receipt Date: 20130704
  Transmission Date: 20140515
  Serious: Yes (Other)
  Sender: FDA-Public Use
  Company Number: IT-BRISTOL-MYERS SQUIBB COMPANY-18941831

PATIENT
  Age: 27 Year
  Sex: Female
  Weight: 42 kg

DRUGS (4)
  1. ABILIFY TABS 10 MG [Suspect]
     Indication: ABNORMAL BEHAVIOUR
     Dosage: MAR12-JUN12-30MG. 10DE12-10MG
     Route: 048
     Dates: start: 201203
  2. PASADEN [Suspect]
     Dosage: .5MG/ML ORAL DROPS
     Route: 048
     Dates: start: 20121210
  3. SEROQUEL [Concomitant]
     Dosage: TAB
  4. ZOLOFT [Concomitant]
     Dosage: TAB

REACTIONS (5)
  - Anxiety [Not Recovered/Not Resolved]
  - Belligerence [Not Recovered/Not Resolved]
  - Disorientation [Not Recovered/Not Resolved]
  - Psychomotor hyperactivity [Not Recovered/Not Resolved]
  - Abnormal behaviour [Not Recovered/Not Resolved]
